FAERS Safety Report 5854247-8 (Version None)
Quarter: 2008Q3

REPORT INFORMATION
  Report Type: 
  Country: None (occurrence: None)
  Receive Date: 20080822
  Receipt Date: 20080818
  Transmission Date: 20090109
  Serious: Yes (Hospitalization, Other)
  Sender: FDA-Public Use
  Company Number: PHHY2008BR18513

PATIENT
  Age: 74 Year
  Sex: Female

DRUGS (10)
  1. DIOVAN [Suspect]
     Indication: HYPERTENSION
     Dosage: 1 DF, QD
     Route: 048
  2. VASOGARD [Concomitant]
     Indication: CEREBROVASCULAR ACCIDENT
  3. CARVEDILOL [Concomitant]
     Indication: HYPERTENSION
  4. ANCORON [Concomitant]
  5. ASPIRIN [Concomitant]
  6. OMEPRAZOLE [Concomitant]
     Dosage: 40 MG
  7. LEXOTAN [Concomitant]
     Indication: SOMNOLENCE
  8. HIDANTAL [Concomitant]
  9. INSULIN [Concomitant]
  10. DAONIL [Concomitant]
     Dosage: 5 MG

REACTIONS (2)
  - ANGIOPLASTY [None]
  - RENAL FAILURE [None]
